FAERS Safety Report 9660538 (Version 1)
Quarter: 2013Q4

REPORT INFORMATION
  Report Type: Spontaneous
  Country: JP (occurrence: JP)
  Receive Date: 20131031
  Receipt Date: 20131031
  Transmission Date: 20140711
  Serious: Yes (Other)
  Sender: FDA-Public Use
  Company Number: JP-BRISTOL-MYERS SQUIBB COMPANY-19680974

PATIENT
  Age: 64 Year
  Sex: Male

DRUGS (1)
  1. HYDREA CAPS [Suspect]
     Indication: THROMBOCYTOSIS
     Route: 048

REACTIONS (1)
  - Colon cancer recurrent [Unknown]
